FAERS Safety Report 8314756-9 (Version None)
Quarter: 2012Q2

REPORT INFORMATION
  Report Type: 
  Country: None (occurrence: None)
  Receive Date: 20120426
  Receipt Date: 20120418
  Transmission Date: 20120825
  Serious: Yes (Hospitalization)
  Sender: FDA-Public Use
  Company Number: DE-ELI_LILLY_AND_COMPANY-DE201204006381

PATIENT
  Sex: Male
  Weight: 101 kg

DRUGS (1)
  1. BYDUREON [Suspect]
     Indication: DIABETES MELLITUS
     Dosage: 2 MG, WEEKLY (1/W)
     Route: 058
     Dates: start: 20111201

REACTIONS (3)
  - WEIGHT DECREASED [None]
  - VIITH NERVE PARALYSIS [None]
  - GLYCOSYLATED HAEMOGLOBIN INCREASED [None]
